FAERS Safety Report 6674853-0 (Version None)
Quarter: 2010Q1

REPORT INFORMATION
  Report Type: 
  Country: None (occurrence: None)
  Receive Date: 20100331
  Receipt Date: 20100125
  Transmission Date: 20100710
  Serious: Yes (Other)
  Sender: FDA-Public Use
  Company Number: 2010010975

PATIENT
  Age: 59 Year
  Sex: Female
  Weight: 63.5 kg

DRUGS (7)
  1. SUTENT [Suspect]
     Indication: RENAL CELL CARCINOMA
     Dosage: 50MG, ORAL
     Route: 048
     Dates: start: 20091001
  2. ZOMETA [Concomitant]
  3. AVASTIN [Concomitant]
  4. FISH OIL (FISH OIL) [Concomitant]
  5. CRANBERRY PILLS (CRANBERRY PILLS) [Concomitant]
  6. CYMBALTA [Concomitant]
  7. PROTONIX [Concomitant]

REACTIONS (8)
  - BLOOD PRESSURE INCREASED [None]
  - DIARRHOEA [None]
  - DYSGEUSIA [None]
  - DYSPEPSIA [None]
  - FATIGUE [None]
  - VERTIGO [None]
  - VOMITING [None]
  - WHITE BLOOD CELL COUNT DECREASED [None]
